FAERS Safety Report 19936261 (Version 1)
Quarter: 2021Q4

REPORT INFORMATION
  Report Type: Spontaneous
  Country: None (occurrence: GB)
  Receive Date: 20211008
  Receipt Date: 20211008
  Transmission Date: 20220303
  Serious: Yes (Other)
  Sender: FDA-Public Use
  Company Number: GB-AIR PRODUCTS AND CHEMICALS, INC. -2120360

PATIENT
  Sex: Female

DRUGS (1)
  1. OXYGEN [Suspect]
     Active Substance: OXYGEN

REACTIONS (3)
  - Device leakage [None]
  - Occupational exposure to product [None]
  - Injury [None]
